FAERS Safety Report 23221119 (Version 1)
Quarter: 2023Q4

REPORT INFORMATION
  Report Type: Spontaneous
  Country: US (occurrence: US)
  Receive Date: 20231123
  Receipt Date: 20231123
  Transmission Date: 20240109
  Serious: No
  Sender: FDA-Public Use
  Company Number: US-drreddys-LIT/USA/23/0182656

PATIENT
  Sex: Male

DRUGS (14)
  1. PRIMIDONE [Suspect]
     Active Substance: PRIMIDONE
     Indication: Parkinsonism
  2. PRIMIDONE [Suspect]
     Active Substance: PRIMIDONE
     Indication: Tremor
  3. CARBIDOPA\LEVODOPA [Suspect]
     Active Substance: CARBIDOPA\LEVODOPA
     Indication: Parkinsonism
     Dosage: 100MG-25MG
     Route: 048
  4. CARBIDOPA\LEVODOPA [Suspect]
     Active Substance: CARBIDOPA\LEVODOPA
     Indication: Tremor
  5. ONDANSETRON [Suspect]
     Active Substance: ONDANSETRON
     Indication: Product used for unknown indication
  6. CARBIDOPA [Suspect]
     Active Substance: CARBIDOPA
     Indication: Parkinsonism
  7. CARBIDOPA [Suspect]
     Active Substance: CARBIDOPA
     Indication: Tremor
  8. AMANTADINE [Suspect]
     Active Substance: AMANTADINE
     Indication: Parkinsonism
  9. AMANTADINE [Suspect]
     Active Substance: AMANTADINE
     Indication: Tremor
  10. TOPIRAMATE [Suspect]
     Active Substance: TOPIRAMATE
     Indication: Parkinsonism
  11. TOPIRAMATE [Suspect]
     Active Substance: TOPIRAMATE
     Indication: Tremor
  12. ARIPIPRAZOLE [Concomitant]
     Active Substance: ARIPIPRAZOLE
     Indication: Affective disorder
     Dates: start: 2010
  13. PROPRANOLOL [Concomitant]
     Active Substance: PROPRANOLOL HYDROCHLORIDE
     Indication: Portal hypertension
  14. CHENODIOL [Concomitant]
     Active Substance: CHENODIOL
     Indication: Product used for unknown indication

REACTIONS (3)
  - Gastrointestinal disorder [Unknown]
  - Drug ineffective [Unknown]
  - Product use in unapproved indication [Unknown]
